FAERS Safety Report 12961018 (Version 1)
Quarter: 2016Q4

REPORT INFORMATION
  Report Type: Spontaneous
  Country: AU (occurrence: AU)
  Receive Date: 20161121
  Receipt Date: 20161121
  Transmission Date: 20170207
  Serious: Yes (Hospitalization)
  Sender: FDA-Public Use
  Company Number: AU-IPCA LABORATORIES LIMITED-IPC201611-000956

PATIENT
  Age: 50 Year
  Sex: Male

DRUGS (8)
  1. VENLAFAXINE [Suspect]
     Active Substance: VENLAFAXINE HYDROCHLORIDE
  2. VENLAFAXINE [Suspect]
     Active Substance: VENLAFAXINE HYDROCHLORIDE
  3. ALCOHOL. [Suspect]
     Active Substance: ALCOHOL
  4. WARFARIN [Suspect]
     Active Substance: WARFARIN
  5. PARACETAMOL [Suspect]
     Active Substance: ACETAMINOPHEN
  6. MIRTAZAPINE. [Concomitant]
     Active Substance: MIRTAZAPINE
  7. WARFARIN [Suspect]
     Active Substance: WARFARIN
     Indication: PULMONARY EMBOLISM
  8. WARFARIN [Suspect]
     Active Substance: WARFARIN

REACTIONS (4)
  - International normalised ratio increased [Recovered/Resolved]
  - Intentional overdose [Unknown]
  - Poisoning deliberate [Unknown]
  - Epistaxis [Recovering/Resolving]
